FAERS Safety Report 8220350-0 (Version None)
Quarter: 2012Q1

REPORT INFORMATION
  Report Type: 
  Country: None (occurrence: None)
  Receive Date: 20120320
  Receipt Date: 20120308
  Transmission Date: 20120608
  Serious: Yes (Other)
  Sender: FDA-Public Use
  Company Number: US-CELGENEUS-163-21880-12031229

PATIENT
  Sex: Male

DRUGS (3)
  1. ALBUTEROL [Concomitant]
     Route: 065
  2. SYMBICORT [Concomitant]
     Route: 065
  3. REVLIMID [Suspect]
     Indication: MULTIPLE MYELOMA
     Dosage: 25 MILLIGRAM
     Route: 048
     Dates: start: 20120109

REACTIONS (1)
  - JOINT INJURY [None]
